FAERS Safety Report 21354483 (Version 1)
Quarter: 2022Q3

REPORT INFORMATION
  Report Type: Spontaneous
  Country: IT (occurrence: IT)
  Receive Date: 20220920
  Receipt Date: 20220920
  Transmission Date: 20221026
  Serious: Yes (Other)
  Sender: FDA-Public Use
  Company Number: None

PATIENT
  Age: 63 Year
  Sex: Female
  Weight: 52 kg

DRUGS (4)
  1. AMOXICILLIN\CLAVULANIC ACID [Suspect]
     Active Substance: AMOXICILLIN\CLAVULANIC ACID
     Indication: Endocarditis bacterial
     Dosage: 2.2 G, Q48H
     Route: 042
     Dates: start: 20220808, end: 20220821
  2. CEFTOBIPROLE [Suspect]
     Active Substance: CEFTOBIPROLE
     Indication: Endocarditis bacterial
     Dosage: 500 MG, Q8H
     Route: 065
     Dates: start: 20220811, end: 20220821
  3. ENOXAPARIN SODIUM [Suspect]
     Active Substance: ENOXAPARIN SODIUM
     Indication: Endocarditis bacterial
     Dosage: 4000 IU, Q12H
     Route: 065
     Dates: start: 20220806, end: 20220821
  4. VISIPAQUE [Concomitant]
     Active Substance: IODIXANOL
     Indication: Venogram
     Dosage: UNK
     Route: 065

REACTIONS (1)
  - Erythema [Recovering/Resolving]

NARRATIVE: CASE EVENT DATE: 20220820
